FAERS Safety Report 13355899 (Version 1)
Quarter: 2017Q1

REPORT INFORMATION
  Report Type: Spontaneous
  Country: AU (occurrence: AU)
  Receive Date: 20170321
  Receipt Date: 20170321
  Transmission Date: 20170429
  Serious: Yes (Life-Threatening, Other)
  Sender: FDA-Public Use
  Company Number: AU-PFIZER INC-HQWYE692123NOV05

PATIENT
  Sex: Male

DRUGS (1)
  1. EFFEXOR XR [Suspect]
     Active Substance: VENLAFAXINE HYDROCHLORIDE
     Dosage: 150 MG, 2X/DAY
     Route: 048
     Dates: start: 20040615

REACTIONS (5)
  - Suicidal ideation [Unknown]
  - Serotonin syndrome [Unknown]
  - Homicidal ideation [Unknown]
  - Aggression [Unknown]
  - Akathisia [Unknown]

NARRATIVE: CASE EVENT DATE: 20040815
